FAERS Safety Report 7732777-1 (Version None)
Quarter: 2011Q3

REPORT INFORMATION
  Report Type: 
  Country: None (occurrence: None)
  Receive Date: 20110907
  Receipt Date: 20110610
  Transmission Date: 20111222
  Serious: Yes (Hospitalization, Other)
  Sender: FDA-Public Use
  Company Number: SE-RANBAXY-2011RR-47369

PATIENT
  Sex: Male

DRUGS (3)
  1. ACYCLOVIR [Suspect]
     Indication: HERPES ZOSTER
     Dosage: 4GMD
     Route: 048
     Dates: start: 20110407, end: 20110414
  2. STALEVO FILM COATED TABLET 125MG/ 31.25MG/ 200 [Concomitant]
     Indication: PRODUCT USED FOR UNKNOWN INDICATION
     Dosage: UNK
     Route: 065
  3. REQUIP FILM-COATED TABLET [Concomitant]
     Indication: PRODUCT USED FOR UNKNOWN INDICATION
     Route: 065

REACTIONS (1)
  - VERTIGO [None]
